FAERS Safety Report 8265015-4 (Version None)
Quarter: 2012Q2

REPORT INFORMATION
  Report Type: 
  Country: None (occurrence: None)
  Receive Date: 20120406
  Receipt Date: 20120402
  Transmission Date: 20120825
  Serious: Yes (Hospitalization, Other)
  Sender: FDA-Public Use
  Company Number: PHHY2012FR025444

PATIENT
  Sex: Male
  Weight: 85 kg

DRUGS (5)
  1. ANGIOTENSIN II ANTAGONISTS [Concomitant]
  2. ASPIRIN [Concomitant]
  3. RASILEZ [Suspect]
     Dosage: 1 DF, QD
     Dates: start: 20100925, end: 20120201
  4. ALLOPURINOL [Concomitant]
  5. BETA BLOCKING AGENTS [Concomitant]

REACTIONS (3)
  - RENAL FAILURE [None]
  - GLOMERULAR FILTRATION RATE DECREASED [None]
  - BLOOD POTASSIUM INCREASED [None]
